FAERS Safety Report 16452508 (Version 6)
Quarter: 2020Q1

REPORT INFORMATION
  Report Type: Report from Study
  Country: US (occurrence: US)
  Receive Date: 20190619
  Receipt Date: 20200225
  Transmission Date: 20200409
  Serious: Yes (Hospitalization, Other)
  Sender: FDA-Public Use
  Company Number: US-ACTELION-A-NJ2019-184607

PATIENT
  Age: 8 Month
  Sex: Male

DRUGS (19)
  1. TRACLEER [Suspect]
     Active Substance: BOSENTAN
     Dosage: 16 MG, BID
     Dates: start: 20180925
  2. CLOBAZAM. [Concomitant]
     Active Substance: CLOBAZAM
     Dosage: 2.5 MG/ML
     Dates: start: 20191005
  3. OFLOXACIN. [Concomitant]
     Active Substance: OFLOXACIN
     Dosage: UNK
     Dates: start: 20191211
  4. POTASSIUM CHLORIDE. [Concomitant]
     Active Substance: POTASSIUM CHLORIDE
  5. LEVOTHYROXINE. [Concomitant]
     Active Substance: LEVOTHYROXINE
  6. REVATIO [Concomitant]
     Active Substance: SILDENAFIL CITRATE
     Dosage: 10 MG/ML
     Dates: start: 20191108
  7. MILK OF MAGNESIA [Concomitant]
     Active Substance: MAGNESIUM HYDROXIDE
  8. VITAMIN D3 [Concomitant]
     Active Substance: CHOLECALCIFEROL
     Dosage: UNK
     Dates: start: 20191205
  9. ENOXAPARIN [Concomitant]
     Active Substance: ENOXAPARIN
  10. TRACLEER [Suspect]
     Active Substance: BOSENTAN
     Indication: PULMONARY ARTERIAL HYPERTENSION
     Dosage: 32 MG, BID
     Route: 048
     Dates: start: 20190725
  11. LOPERAMIDE [Concomitant]
     Active Substance: LOPERAMIDE
     Dosage: 1 MG
     Dates: start: 20191029
  12. MULTIVITAMIN [Concomitant]
     Active Substance: VITAMINS
     Dosage: UNK
     Dates: start: 20190327
  13. PHENOBARB [Concomitant]
     Active Substance: PHENOBARBITAL SODIUM
  14. CLONIDINE. [Concomitant]
     Active Substance: CLONIDINE
     Dosage: UNK
     Dates: start: 20191112
  15. LEVETIRACETAM. [Concomitant]
     Active Substance: LEVETIRACETAM
     Dosage: 100 MG/ML
     Dates: start: 20190409
  16. DIURIL [Concomitant]
     Active Substance: CHLOROTHIAZIDE
     Dosage: UNK
     Dates: start: 201908
  17. BUDESONIDE. [Concomitant]
     Active Substance: BUDESONIDE
     Dosage: 0.5 MG
     Dates: start: 20191211
  18. CYPROHEPTADIN [Concomitant]
     Active Substance: CYPROHEPTADINE HYDROCHLORIDE
     Dosage: 2 MG/5 ML
     Dates: start: 20191122
  19. OSELTAMIVIR [Concomitant]
     Active Substance: OSELTAMIVIR

REACTIONS (9)
  - Respiratory rate increased [Recovered/Resolved]
  - Urinary tract infection [Not Recovered/Not Resolved]
  - Hospitalisation [Unknown]
  - Oxygen saturation decreased [Recovered/Resolved]
  - Product use issue [Unknown]
  - Blood sodium increased [Unknown]
  - Infection [Not Recovered/Not Resolved]
  - Pneumonia [Unknown]
  - Surgery [Recovered/Resolved]

NARRATIVE: CASE EVENT DATE: 20181119
